FAERS Safety Report 8123513-8 (Version None)
Quarter: 2012Q1

REPORT INFORMATION
  Report Type: 
  Country: None (occurrence: None)
  Receive Date: 20120208
  Receipt Date: 20120131
  Transmission Date: 20120608
  Serious: Yes (Hospitalization)
  Sender: FDA-Public Use
  Company Number: PHHY2012DE008655

PATIENT
  Sex: Female
  Weight: 67 kg

DRUGS (1)
  1. ESTRADERM [Suspect]
     Indication: HORMONE REPLACEMENT THERAPY
     Dosage: 1 PATCH EVERY 3 OR 4 DAYS
     Route: 062
     Dates: start: 19820101, end: 20120101

REACTIONS (6)
  - JAUNDICE [None]
  - LIPIDS INCREASED [None]
  - OEDEMA PERIPHERAL [None]
  - LIVER FUNCTION TEST ABNORMAL [None]
  - BLOOD IRON INCREASED [None]
  - HEPATIC CIRRHOSIS [None]
